FAERS Safety Report 6015463-8 (Version None)
Quarter: 2008Q4

REPORT INFORMATION
  Report Type: 
  Country: None (occurrence: None)
  Receive Date: 20081218
  Receipt Date: 20081203
  Transmission Date: 20090506
  Serious: Yes (Other)
  Sender: FDA-Public Use
  Company Number: PPC200800031

PATIENT
  Age: 78 Year
  Sex: Female

DRUGS (2)
  1. CEFAZOLIN [Suspect]
     Indication: PROPHYLAXIS
     Dosage: 50 MG/ML
  2. IOHEXOL (IOHEXOL) [Concomitant]

REACTIONS (6)
  - HEADACHE [None]
  - LOSS OF CONSCIOUSNESS [None]
  - PROCEDURAL COMPLICATION [None]
  - STATUS EPILEPTICUS [None]
  - STUPOR [None]
  - SUBARACHNOID HAEMORRHAGE [None]
